FAERS Safety Report 9553602 (Version 7)
Quarter: 2015Q2

REPORT INFORMATION
  Report Type: Spontaneous
  Country: IT (occurrence: US)
  Receive Date: 20130925
  Receipt Date: 20150630
  Transmission Date: 20150821
  Serious: Yes (Hospitalization, Disabling, Other)
  Sender: FDA-Public Use
  Company Number: US-009507513-1203USA02448

PATIENT
  Sex: Female
  Weight: 69.84 kg

DRUGS (5)
  1. FOSAMAX [Suspect]
     Active Substance: ALENDRONATE SODIUM
     Indication: OSTEOPOROSIS
     Dosage: 70 MG, QW
     Route: 048
     Dates: start: 200802, end: 201105
  2. ALENDRONATE SODIUM. [Suspect]
     Active Substance: ALENDRONATE SODIUM
     Dosage: 70 MG, UNK
     Route: 048
     Dates: start: 20101022
  3. ALENDRONATE SODIUM. [Suspect]
     Active Substance: ALENDRONATE SODIUM
     Dosage: 70 MG, UNK
     Route: 048
     Dates: start: 20110404
  4. ALENDRONATE SODIUM. [Suspect]
     Active Substance: ALENDRONATE SODIUM
     Indication: OSTEOPOROSIS
     Dosage: 70 MG, UNK
     Route: 048
     Dates: start: 20080501
  5. FOSAMAX [Suspect]
     Active Substance: ALENDRONATE SODIUM
     Dosage: UNK
     Route: 048
     Dates: start: 2008, end: 201106

REACTIONS (18)
  - Rotator cuff syndrome [Unknown]
  - Sleep apnoea syndrome [Unknown]
  - Calcium deficiency [Unknown]
  - Iron deficiency anaemia [Not Recovered/Not Resolved]
  - Mitral valve incompetence [Unknown]
  - Constipation [Unknown]
  - Osteoarthritis [Unknown]
  - Osteopetrosis [Unknown]
  - Vitamin D deficiency [Unknown]
  - Carpal tunnel syndrome [Unknown]
  - Gastrooesophageal reflux disease [Unknown]
  - Intramedullary rod insertion [Unknown]
  - Pain in extremity [Unknown]
  - Osteopenia [Unknown]
  - Abdominal discomfort [Unknown]
  - Femur fracture [Not Recovered/Not Resolved]
  - Hyperlipidaemia [Unknown]
  - Dizziness [Unknown]

NARRATIVE: CASE EVENT DATE: 2008
